FAERS Safety Report 5078595-7 (Version None)
Quarter: 2006Q3

REPORT INFORMATION
  Report Type: 
  Country: None (occurrence: None)
  Receive Date: 20060808
  Receipt Date: 20060724
  Transmission Date: 20061208
  Serious: Yes (Other)
  Sender: FDA-Public Use
  Company Number: DE200607003463

PATIENT
  Age: 9 Year
  Sex: Male
  Weight: 46 kg

DRUGS (3)
  1. STRATTERA [Suspect]
     Indication: ATTENTION DEFICIT/HYPERACTIVITY DISORDER
     Dosage: ORAL; 60 MG, DAILY (1/D), ORAL
     Route: 048
     Dates: end: 20060207
  2. STRATTERA [Suspect]
     Indication: ATTENTION DEFICIT/HYPERACTIVITY DISORDER
     Dosage: ORAL; 60 MG, DAILY (1/D), ORAL
     Route: 048
     Dates: start: 20051024
  3. RITALIN [Concomitant]

REACTIONS (2)
  - NONSPECIFIC REACTION [None]
  - SUPRAVENTRICULAR EXTRASYSTOLES [None]
